FAERS Safety Report 12435153 (Version 1)
Quarter: 2016Q2

REPORT INFORMATION
  Report Type: Spontaneous
  Country: US (occurrence: US)
  Receive Date: 20160603
  Receipt Date: 20160603
  Transmission Date: 20160815
  Serious: Yes (Other)
  Sender: FDA-Public Use
  Company Number: US-GLAXOSMITHKLINE-US2016078280

PATIENT
  Age: 79 Year
  Sex: Male

DRUGS (1)
  1. EX-LAX MAXIMUM STRENGTH STIMULANT LAXATIVE [Suspect]
     Active Substance: SENNOSIDES
     Indication: CONSTIPATION
     Dosage: UNK,
     Dates: start: 201605

REACTIONS (4)
  - Knee arthroplasty [Unknown]
  - Drug ineffective [Unknown]
  - Surgery [Unknown]
  - Expired product administered [Unknown]

NARRATIVE: CASE EVENT DATE: 201605
